FAERS Safety Report 7205687-6 (Version None)
Quarter: 2010Q4

REPORT INFORMATION
  Report Type: 
  Country: None (occurrence: None)
  Receive Date: 20101231
  Receipt Date: 20101228
  Transmission Date: 20110411
  Serious: Yes (Hospitalization)
  Sender: FDA-Public Use
  Company Number: IT-PFIZER INC-2010181629

PATIENT
  Age: 2 Year
  Sex: Female

DRUGS (1)
  1. IBUPROFEN [Suspect]
     Indication: INFLUENZA
     Dosage: TWO POSOLOGICAL UNIT DOSES DAILY
     Route: 048
     Dates: start: 20100928, end: 20100929

REACTIONS (3)
  - EYELID OEDEMA [None]
  - RASH ERYTHEMATOUS [None]
  - URTICARIA [None]
